FAERS Safety Report 5073648-1 (Version None)
Quarter: 2006Q3

REPORT INFORMATION
  Report Type: 
  Country: None (occurrence: None)
  Receive Date: 20060808
  Receipt Date: 20040211
  Transmission Date: 20061208
  Serious: No
  Sender: FDA-Public Use
  Company Number: US-AMGEN-US066803

PATIENT
  Sex: Female
  Weight: 69.9 kg

DRUGS (6)
  1. PROCRIT [Suspect]
     Indication: ANAEMIA
     Route: 058
     Dates: start: 20030108
  2. CALTRATE [Concomitant]
  3. FOLIC ACID [Concomitant]
  4. SYNTHROID [Concomitant]
  5. GEMFIBROZIL [Concomitant]
  6. ATENOLOL [Concomitant]

REACTIONS (8)
  - CHILLS [None]
  - CHROMATURIA [None]
  - DRY SKIN [None]
  - INJECTION SITE BRUISING [None]
  - INJECTION SITE PAIN [None]
  - PAIN [None]
  - SOMNOLENCE [None]
  - WEIGHT DECREASED [None]
